FAERS Safety Report 7062592 (Version 3)
Quarter: 2012Q4

REPORT INFORMATION
  Report Type: 
  Country: AU (occurrence: AU)
  Receive Date: 20090724
  Receipt Date: 20120926
  Transmission Date: 20130627
  Serious: Yes (Hospitalization)
  Sender: FDA-Public Use
  Company Number: PHHY2009AU25920

PATIENT
  Age: 24 Year
  Sex: Male

DRUGS (5)
  1. CLOZARIL [Suspect]
     Indication: SCHIZOPHRENIA
     Dosage: 700 mg, 2/52
     Route: 048
     Dates: start: 20060628
  2. FLUVOXAMINE [Concomitant]
     Dosage: 25 mg daily
     Route: 048
  3. RISPERIDONE [Concomitant]
     Indication: SCHIZOPHRENIA
     Dosage: 75 mg, UNK
     Route: 030
     Dates: start: 2007
  4. VALPROATE SODIUM [Concomitant]
     Indication: EPILEPSY
     Dosage: 100 mg, BID
     Dates: start: 2007
  5. QUETIAPINE [Concomitant]
     Indication: SCHIZOPHRENIA
     Dosage: 300 mg, BID
     Route: 048
     Dates: start: 2009

REACTIONS (9)
  - Mental disorder [Unknown]
  - Schizophrenia [Unknown]
  - Schizophrenia, paranoid type [Unknown]
  - Neutrophil count decreased [Recovered/Resolved]
  - White blood cell count decreased [Recovered/Resolved]
  - Mental impairment [None]
  - Laboratory test interference [None]
  - Schizophrenia [None]
  - Infection [None]
